FAERS Safety Report 4268914-3 (Version None)
Quarter: 2004Q1

REPORT INFORMATION
  Report Type: 
  Country: None (occurrence: None)
  Receive Date: 20040112
  Receipt Date: 20040112
  Transmission Date: 20041129
  Serious: Yes (Other)
  Sender: FDA-Public Use
  Company Number: None

PATIENT
  Age: 32 Year
  Weight: 74.8435 kg

DRUGS (3)
  1. LEVAQUIN [Suspect]
     Indication: SINUSITIS
     Dosage: 500MG ONCE DAILY ORAL
     Route: 048
     Dates: start: 20040105, end: 20040106
  2. FLUOXETINE [Concomitant]
  3. KLONOPIN [Concomitant]

REACTIONS (4)
  - ANXIETY [None]
  - DIZZINESS [None]
  - NIGHTMARE [None]
  - THINKING ABNORMAL [None]
